FAERS Safety Report 5391248-0 (Version None)
Quarter: 2007Q3

REPORT INFORMATION
  Report Type: 
  Country: None (occurrence: None)
  Receive Date: 20070717
  Receipt Date: 20070710
  Transmission Date: 20080115
  Serious: Yes (Other)
  Sender: FDA-Public Use
  Company Number: B0479076A

PATIENT

DRUGS (3)
  1. BUSULPHAN (FORMULATION UNKNOWN) (GENERIC) (BUSULFAN) [Suspect]
     Indication: STEM CELL TRANSPLANT
     Dosage: 1 MG/KG / SEE DOSAGE TEXT / ORAL
     Route: 048
  2. ETOPOSIDE [Suspect]
     Indication: STEM CELL TRANSPLANT
     Dosage: 60 MG/KG / SEE DOSAGE TEXT / INTRAVENOUS
     Route: 042
  3. CYCLOPHOSPHAMIDE [Suspect]
     Indication: STEM CELL TRANSPLANT
     Dosage: 120 MG/KG / SEE DOSAGE TEXT / INTRAVENOUS
     Route: 042

REACTIONS (4)
  - BACTERAEMIA [None]
  - ENTEROBACTER INFECTION [None]
  - PSEUDOMONAS INFECTION [None]
  - STAPHYLOCOCCAL INFECTION [None]
